FAERS Safety Report 19570054 (Version 1)
Quarter: 2021Q3

REPORT INFORMATION
  Report Type: Spontaneous
  Country: US (occurrence: US)
  Receive Date: 20210716
  Receipt Date: 20210716
  Transmission Date: 20211014
  Serious: Yes (Other)
  Sender: FDA-Public Use
  Company Number: US-PFIZER INC-2021832394

PATIENT

DRUGS (1)
  1. LORBRENA [Suspect]
     Active Substance: LORLATINIB
     Indication: LUNG NEOPLASM MALIGNANT
     Dosage: UNK
     Route: 048

REACTIONS (12)
  - Hyperlipidaemia [Unknown]
  - Oedema peripheral [Unknown]
  - Hallucination, olfactory [Recovered/Resolved]
  - Slow speech [Unknown]
  - Hallucination, auditory [Recovered/Resolved]
  - Hallucination, visual [Recovered/Resolved]
  - Hypercholesterolaemia [Unknown]
  - Sleep terror [Recovered/Resolved]
  - Cognitive disorder [Recovered/Resolved]
  - Impulse-control disorder [Recovered/Resolved]
  - Increased appetite [Unknown]
  - Weight increased [Unknown]
